FAERS Safety Report 13661729 (Version 5)
Quarter: 2017Q4

REPORT INFORMATION
  Report Type: Report from Study
  Country: US (occurrence: US)
  Receive Date: 20170616
  Receipt Date: 20171020
  Transmission Date: 20180320
  Serious: No
  Sender: FDA-Public Use
  Company Number: PHEH2017US018342

PATIENT
  Age: 65 Year
  Sex: Male

DRUGS (1)
  1. ENTRESTO [Suspect]
     Active Substance: SACUBITRIL\VALSARTAN
     Indication: CARDIAC FAILURE
     Dosage: 50 MG (SACUBITRIL 24 MG/ VALSARTAN 26 MG), QD
     Route: 048
     Dates: start: 20170307, end: 20170325

REACTIONS (9)
  - Oedema [Unknown]
  - Subcutaneous haematoma [Unknown]
  - Angioedema [Recovered/Resolved]
  - Angioedema [Recovered/Resolved]
  - Underdose [Unknown]
  - Pain [Unknown]
  - Drug prescribing error [Unknown]
  - Sleep disorder [Unknown]
  - Lip swelling [Unknown]

NARRATIVE: CASE EVENT DATE: 20170324
